FAERS Safety Report 9914921 (Version 1)
Quarter: 2014Q1

REPORT INFORMATION
  Report Type: Spontaneous
  Country: US (occurrence: US)
  Receive Date: 20140220
  Receipt Date: 20140220
  Transmission Date: 20141002
  Serious: No
  Sender: FDA-Public Use
  Company Number: US-PFIZER INC-2014048099

PATIENT
  Sex: 0

DRUGS (1)
  1. PREGABALIN [Suspect]
     Route: 048

REACTIONS (1)
  - No adverse event [Unknown]
